FAERS Safety Report 6114973-2 (Version None)
Quarter: 2009Q1

REPORT INFORMATION
  Report Type: 
  Country: None (occurrence: None)
  Receive Date: 20090313
  Receipt Date: 20090302
  Transmission Date: 20090719
  Serious: Yes (Other)
  Sender: FDA-Public Use
  Company Number: JP-PFIZER INC-2009178365

PATIENT

DRUGS (2)
  1. HALCION [Suspect]
     Route: 048
  2. SERENACE [Concomitant]
     Route: 048

REACTIONS (3)
  - AMNESIA [None]
  - DELIRIUM [None]
  - RESTLESSNESS [None]
